FAERS Safety Report 6423219-7 (Version None)
Quarter: 2009Q4

REPORT INFORMATION
  Report Type: 
  Country: None (occurrence: None)
  Receive Date: 20091102
  Receipt Date: 20091023
  Transmission Date: 20100525
  Serious: Yes (Hospitalization, Other)
  Sender: FDA-Public Use
  Company Number: BR-ABBOTT-08P-020-0491824-00

PATIENT
  Sex: Female
  Weight: 64.5 kg

DRUGS (4)
  1. HUMIRA [Suspect]
     Indication: RHEUMATOID ARTHRITIS
     Route: 058
     Dates: start: 20080401, end: 20080601
  2. HUMIRA [Suspect]
     Route: 058
     Dates: end: 20090830
  3. METHOTREXATE [Concomitant]
     Indication: RHEUMATOID ARTHRITIS
  4. ANTI-INFLAMMATORY [Concomitant]
     Indication: PAIN
     Dosage: SPORADICALLY

REACTIONS (5)
  - ACUTE STRESS DISORDER [None]
  - AFFECTIVE DISORDER [None]
  - CHOLECYSTITIS [None]
  - CHOLELITHIASIS [None]
  - INJECTION SITE REACTION [None]
